FAERS Safety Report 8188169-7 (Version None)
Quarter: 2012Q1

REPORT INFORMATION
  Report Type: 
  Country: None (occurrence: None)
  Receive Date: 20120306
  Receipt Date: 20120229
  Transmission Date: 20120608
  Serious: Yes (Death, Other)
  Sender: FDA-Public Use
  Company Number: FR-PFIZER INC-2012018964

PATIENT
  Age: 68 Year
  Sex: Male
  Weight: 63 kg

DRUGS (4)
  1. FOLIC ACID [Concomitant]
     Indication: ANAEMIA FOLATE DEFICIENCY
     Dosage: 5 MG, 3X/DAY
     Route: 048
     Dates: start: 20101126
  2. TORISEL [Suspect]
     Indication: MANTLE CELL LYMPHOMA
  3. BACTRIM [Concomitant]
     Indication: PNEUMOCYSTIS JIROVECI PNEUMONIA
     Dosage: 800 MG, UNK
     Route: 048
     Dates: start: 20101126
  4. VALACYCLOVIR HYDROCHLORIDE [Concomitant]
     Indication: INFECTION PROPHYLAXIS
     Dosage: 500 MG, 2X/DAY
     Route: 048
     Dates: start: 20101126

REACTIONS (2)
  - CEREBRAL HAEMORRHAGE [None]
  - HEAD INJURY [None]
